FAERS Safety Report 7754660-8 (Version None)
Quarter: 2011Q3

REPORT INFORMATION
  Report Type: 
  Country: None (occurrence: None)
  Receive Date: 20110915
  Receipt Date: 20110824
  Transmission Date: 20111222
  Serious: No
  Sender: FDA-Public Use
  Company Number: US-ALLERGAN-1111354US

PATIENT
  Age: 87 Year
  Sex: Female

DRUGS (3)
  1. LUMIGAN [Suspect]
     Indication: GLAUCOMA
     Dosage: 1 GTT, QPM
     Route: 047
     Dates: start: 20110820
  2. VALIUM [Concomitant]
     Indication: ANXIETY
     Dosage: 5 MG, BREAKS THE TABLET INTO 4 AND TAKES AS NEEDED
     Route: 048
  3. SYNTHROID [Concomitant]
     Indication: THYROID DISORDER
     Route: 048

REACTIONS (4)
  - DIZZINESS [None]
  - DYSPNOEA [None]
  - ASTHENIA [None]
  - ASTHMA [None]
